FAERS Safety Report 7914375-X (Version None)
Quarter: 2011Q4

REPORT INFORMATION
  Report Type: 
  Country: None (occurrence: None)
  Receive Date: 20111115
  Receipt Date: 20111104
  Transmission Date: 20120403
  Serious: Yes (Other)
  Sender: FDA-Public Use
  Company Number: GB-ELI_LILLY_AND_COMPANY-GB201109001897

PATIENT
  Sex: Male

DRUGS (2)
  1. BYETTA [Suspect]
     Dosage: 10 UG, BID
  2. BYETTA [Suspect]
     Dosage: 10 UG, BID

REACTIONS (5)
  - DRUG INTERACTION [None]
  - ANAEMIA [None]
  - HAEMORRHAGE [None]
  - WEIGHT DECREASED [None]
  - DECREASED APPETITE [None]
